FAERS Safety Report 22901236 (Version 3)
Quarter: 2023Q4

REPORT INFORMATION
  Report Type: Report from Study
  Country: US (occurrence: US)
  Receive Date: 20230904
  Receipt Date: 20231025
  Transmission Date: 20240110
  Serious: Yes (Hospitalization, Other)
  Sender: FDA-Public Use
  Company Number: US-UCBSA-2023033662

PATIENT
  Sex: Female

DRUGS (1)
  1. CERTOLIZUMAB PEGOL [Suspect]
     Active Substance: CERTOLIZUMAB PEGOL
     Indication: Rheumatoid arthritis
     Dosage: 400 MILLIGRAM, EV 4 WEEKS
     Route: 058
     Dates: start: 20230406, end: 20230619

REACTIONS (10)
  - Cellulitis [Not Recovered/Not Resolved]
  - Abscess limb [Not Recovered/Not Resolved]
  - Lymphadenopathy [Not Recovered/Not Resolved]
  - Rheumatoid arthritis [Recovering/Resolving]
  - Surgery [Unknown]
  - Bronchitis [Recovering/Resolving]
  - Furuncle [Not Recovered/Not Resolved]
  - Pharyngitis streptococcal [Recovering/Resolving]
  - Nasopharyngitis [Not Recovered/Not Resolved]
  - Wound [Recovering/Resolving]

NARRATIVE: CASE EVENT DATE: 20230101
